FAERS Safety Report 14657472 (Version 2)
Quarter: 2018Q2

REPORT INFORMATION
  Report Type: Spontaneous
  Country: US (occurrence: US)
  Receive Date: 20180320
  Receipt Date: 20180521
  Transmission Date: 20180711
  Serious: Yes (Other)
  Sender: FDA-Public Use
  Company Number: US-SUN PHARMACEUTICAL INDUSTRIES LTD-2018US-167048

PATIENT
  Age: 62 Year
  Sex: Female

DRUGS (1)
  1. METOCLOPRAMIDE. [Suspect]
     Active Substance: METOCLOPRAMIDE
     Indication: IMPAIRED GASTRIC EMPTYING
     Route: 065

REACTIONS (2)
  - Drug ineffective [Unknown]
  - Gastritis bacterial [Recovering/Resolving]
